FAERS Safety Report 8409708-4 (Version None)
Quarter: 2012Q2

REPORT INFORMATION
  Report Type: 
  Country: None (occurrence: None)
  Receive Date: 20120323
  Receipt Date: 20110204
  Transmission Date: 20120825
  Serious: Yes (Other)
  Sender: FDA-Public Use
  Company Number: 163-21880-11020960

PATIENT
  Sex: Male

DRUGS (1)
  1. REVLIMID [Suspect]
     Indication: MYELOFIBROSIS
     Dosage: 10 MG, 1 IN 1 D, PO
     Route: 048
     Dates: start: 20080701, end: 20080101

REACTIONS (2)
  - BLOOD URINE PRESENT [None]
  - WEIGHT DECREASED [None]
